FAERS Safety Report 5205743-8 (Version None)
Quarter: 2007Q1

REPORT INFORMATION
  Report Type: 
  Country: None (occurrence: None)
  Receive Date: 20070105
  Receipt Date: 20070105
  Transmission Date: 20070707
  Serious: Yes (Hospitalization)
  Sender: FDA-Public Use
  Company Number: None

PATIENT
  Sex: Male
  Weight: 92.5338 kg

DRUGS (16)
  1. FUROSEMIDE [Suspect]
     Indication: HYPERTENSION
     Dosage: 20 MG DAILY PO
     Route: 048
     Dates: start: 20050701, end: 20060701
  2. VERAPAMIL [Suspect]
     Indication: HYPERTENSION
     Dosage: 240 MG BID PO
     Route: 048
     Dates: start: 20050501, end: 20060701
  3. KETOCONAZOLE [Concomitant]
  4. PRAMOXINE HCL 1% LOTION [Concomitant]
  5. TRETINOIN 0.025% [Concomitant]
  6. NYSTATIN [Concomitant]
  7. SIMVASTATIN [Concomitant]
  8. BACLOFEN [Concomitant]
  9. ENALAPRIL MALEATE [Concomitant]
  10. FUROSEMIDE [Concomitant]
  11. OMEPRAZOLE [Concomitant]
  12. VERAPAMIL [Concomitant]
  13. FLUOCINONIDE 0.05% [Concomitant]
  14. GABAPENTIN [Concomitant]
  15. ACYCLOVIR [Concomitant]
  16. HYDROCODONE BITARTRATE + ACETAMINOPHEN [Concomitant]

REACTIONS (11)
  - ADRENAL INSUFFICIENCY [None]
  - BLOOD PRESSURE SYSTOLIC INCREASED [None]
  - DEHYDRATION [None]
  - DIZZINESS [None]
  - HYPERHIDROSIS [None]
  - HYPOTENSION [None]
  - NO THERAPEUTIC RESPONSE [None]
  - OEDEMA PERIPHERAL [None]
  - PRESYNCOPE [None]
  - TREATMENT NONCOMPLIANCE [None]
  - VISION BLURRED [None]
